FAERS Safety Report 7749724 (Version 2)
Quarter: 2013Q1

REPORT INFORMATION
  Report Type: Spontaneous
  Country: CA (occurrence: CA)
  Receive Date: 20110106
  Receipt Date: 20130312
  Transmission Date: 20140127
  Serious: Yes (Death, Hospitalization)
  Sender: FDA-Public Use
  Company Number: CA-RANBAXY-2010US-40799

PATIENT
  Sex: Female

DRUGS (10)
  1. RISPERIDONE [Suspect]
     Indication: PSYCHOTIC DISORDER
     Dosage: UNK
     Route: 065
  2. RISPERIDONE [Suspect]
     Indication: PSYCHOTIC DISORDER
     Dosage: UNK
     Route: 065
  3. RISPERIDONE [Suspect]
     Indication: PSYCHOTIC DISORDER
     Dosage: 1MG BID
  4. RISPERIDONE [Suspect]
     Indication: PSYCHOTIC DISORDER
     Dosage: 1 MG MORNING AND 2 MG BEFORE BEDTIME
     Route: 065
  5. NORTRIPTYLINE HYDROCHLORIDE [Suspect]
     Indication: PSYCHOTIC DISORDER
     Dosage: UNK
     Route: 065
  6. OLANZAPINE [Suspect]
     Indication: PSYCHOTIC DISORDER
     Dosage: UNK
     Route: 065
  7. OLANZAPINE [Suspect]
     Indication: PSYCHOTIC DISORDER
     Dosage: 5 MG DAILY
     Route: 065
  8. VENLAFAXINE [Suspect]
     Indication: PSYCHOTIC DISORDER
     Dosage: UNK
     Route: 065
  9. DIPHENHYDRAMINE [Concomitant]
     Indication: PRODUCT USED FOR UNKNOWN INDICATION
     Dosage: UNK
     Route: 065
  10. LOXAPINE [Concomitant]
     Indication: PRODUCT USED FOR UNKNOWN INDICATION
     Dosage: UNK
     Route: 065

REACTIONS (5)
  - Pulmonary embolism [Fatal]
  - Hyperprolactinaemia [Unknown]
  - Weight increased [Unknown]
  - Amenorrhoea [Unknown]
  - Psychotic disorder [Unknown]
